FAERS Safety Report 25539964 (Version 1)
Quarter: 2025Q3

REPORT INFORMATION
  Report Type: Spontaneous
  Country: EU (occurrence: EU)
  Receive Date: 20250710
  Receipt Date: 20250710
  Transmission Date: 20251020
  Serious: Yes (Other)
  Sender: MYLAN
  Company Number: None

PATIENT
  Age: 27 Year
  Sex: Male

DRUGS (16)
  1. LYRICA [Suspect]
     Active Substance: PREGABALIN
     Indication: Product used for unknown indication
     Dates: start: 20250509, end: 20250510
  2. LYRICA [Suspect]
     Active Substance: PREGABALIN
     Route: 048
     Dates: start: 20250509, end: 20250510
  3. LYRICA [Suspect]
     Active Substance: PREGABALIN
     Route: 048
     Dates: start: 20250509, end: 20250510
  4. LYRICA [Suspect]
     Active Substance: PREGABALIN
     Dates: start: 20250509, end: 20250510
  5. TRAMADOL [Suspect]
     Active Substance: TRAMADOL
     Indication: Product used for unknown indication
     Dates: start: 20250509, end: 20250510
  6. TRAMADOL [Suspect]
     Active Substance: TRAMADOL
     Route: 048
     Dates: start: 20250509, end: 20250510
  7. TRAMADOL [Suspect]
     Active Substance: TRAMADOL
     Route: 048
     Dates: start: 20250509, end: 20250510
  8. TRAMADOL [Suspect]
     Active Substance: TRAMADOL
     Dates: start: 20250509, end: 20250510
  9. COCAINE [Suspect]
     Active Substance: COCAINE
     Indication: Product used for unknown indication
     Dates: start: 20250509, end: 20250510
  10. COCAINE [Suspect]
     Active Substance: COCAINE
     Route: 048
     Dates: start: 20250509, end: 20250510
  11. COCAINE [Suspect]
     Active Substance: COCAINE
     Route: 048
     Dates: start: 20250509, end: 20250510
  12. COCAINE [Suspect]
     Active Substance: COCAINE
     Dates: start: 20250509, end: 20250510
  13. ALCOHOL [Suspect]
     Active Substance: ALCOHOL
     Indication: Product used for unknown indication
     Dates: start: 20250509, end: 20250510
  14. ALCOHOL [Suspect]
     Active Substance: ALCOHOL
     Route: 048
     Dates: start: 20250509, end: 20250510
  15. ALCOHOL [Suspect]
     Active Substance: ALCOHOL
     Route: 048
     Dates: start: 20250509, end: 20250510
  16. ALCOHOL [Suspect]
     Active Substance: ALCOHOL
     Dates: start: 20250509, end: 20250510

REACTIONS (2)
  - Tonic convulsion [Recovered/Resolved]
  - Alcohol withdrawal syndrome [Recovered/Resolved]

NARRATIVE: CASE EVENT DATE: 20250510
